FAERS Safety Report 16014673 (Version 4)
Quarter: 2019Q2

REPORT INFORMATION
  Report Type: Report from Study
  Country: US (occurrence: US)
  Receive Date: 20190227
  Receipt Date: 20190515
  Transmission Date: 20190711
  Serious: Yes (Death, Hospitalization)
  Sender: FDA-Public Use
  Company Number: US-ACTELION-A-NJ2016-134532

PATIENT
  Age: 44 Year
  Sex: Male
  Weight: 62.59 kg

DRUGS (4)
  1. VELETRI [Suspect]
     Active Substance: EPOPROSTENOL
     Dosage: 30 NG/KG, PER MIN
     Route: 042
  2. LETAIRIS [Concomitant]
     Active Substance: AMBRISENTAN
     Dosage: UNK
  3. VELETRI [Suspect]
     Active Substance: EPOPROSTENOL
     Indication: PULMONARY ARTERIAL HYPERTENSION
     Dosage: 29 NG/KG, PER MIN
     Route: 042
     Dates: start: 20121205
  4. REVATIO [Concomitant]
     Active Substance: SILDENAFIL CITRATE

REACTIONS (19)
  - Abdominal pain [Unknown]
  - Chest pain [Unknown]
  - Scleroderma [Unknown]
  - Malaise [Recovered/Resolved]
  - Pain in extremity [Not Recovered/Not Resolved]
  - Disease progression [Unknown]
  - Death [Fatal]
  - Diarrhoea [Unknown]
  - Lung disorder [Unknown]
  - Cholelithiasis [Unknown]
  - Pain in jaw [Not Recovered/Not Resolved]
  - Dyspnoea at rest [Unknown]
  - Condition aggravated [Unknown]
  - Feeling abnormal [Recovered/Resolved]
  - Hyperhidrosis [Unknown]
  - Flushing [Not Recovered/Not Resolved]
  - Renal disorder [Unknown]
  - Vascular device infection [Unknown]
  - Dyspnoea exertional [Unknown]

NARRATIVE: CASE EVENT DATE: 20190502
